FAERS Safety Report 9225309 (Version 1)
Quarter: 2013Q1

REPORT INFORMATION
  Report Type: Spontaneous
  Country: US (occurrence: None)
  Receive Date: 20120912
  Receipt Date: 20120912
  Transmission Date: 20140127
  Serious: No
  Sender: FDA-Public Use
  Company Number: 2012SP016391

PATIENT
  Age: 44 Year
  Sex: Male

DRUGS (2)
  1. SAPHRIS [Suspect]
     Indication: SCHIZOPHRENIA
     Dosage: 5 MG:QD:SL
     Dates: start: 201202
  2. DEPAKOTE [Concomitant]

REACTIONS (2)
  - Headache [None]
  - Underdose [None]
